FAERS Safety Report 23960887 (Version 1)
Quarter: 2024Q2

REPORT INFORMATION
  Report Type: Spontaneous
  Country: US (occurrence: None)
  Receive Date: 20240609
  Receipt Date: 20240609
  Transmission Date: 20240716
  Serious: Yes (Life-Threatening, Hospitalization, Other)
  Sender: FDA-Public Use
  Company Number: None

PATIENT
  Age: 47 Year
  Sex: Female

DRUGS (1)
  1. REMDESIVIR [Suspect]
     Active Substance: REMDESIVIR
     Dates: start: 20220103, end: 20220108

REACTIONS (4)
  - Consciousness fluctuating [None]
  - Condition aggravated [None]
  - COVID-19 [None]
  - Bacterial infection [None]

NARRATIVE: CASE EVENT DATE: 20220103
